FAERS Safety Report 14332535 (Version 1)
Quarter: 2017Q4

REPORT INFORMATION
  Report Type: Report from Study
  Country: US (occurrence: US)
  Receive Date: 20171228
  Receipt Date: 20171228
  Transmission Date: 20180321
  Serious: Yes (Hospitalization)
  Sender: FDA-Public Use
  Company Number: PHHO2017US017226

PATIENT
  Age: 49 Year
  Sex: Male
  Weight: 71.66 kg

DRUGS (3)
  1. KISQALI [Suspect]
     Active Substance: RIBOCICLIB
     Indication: DEDIFFERENTIATED LIPOSARCOMA
     Dosage: 300 MG, QD
     Route: 048
     Dates: start: 20171204
  2. EVEROLIMUS. [Suspect]
     Active Substance: EVEROLIMUS
     Indication: DEDIFFERENTIATED LIPOSARCOMA
     Dosage: 2.5 MG, QD
     Route: 048
     Dates: start: 20171204
  3. CREON [Concomitant]
     Active Substance: PANCRELIPASE AMYLASE\PANCRELIPASE LIPASE\PANCRELIPASE PROTEASE
     Indication: ENZYME SUPPLEMENTATION
     Dosage: 12000 TID
     Route: 048
     Dates: start: 20160406

REACTIONS (1)
  - Systemic inflammatory response syndrome [Recovered/Resolved with Sequelae]

NARRATIVE: CASE EVENT DATE: 20171216
